FAERS Safety Report 5270656-2 (Version None)
Quarter: 2007Q1

REPORT INFORMATION
  Report Type: 
  Country: None (occurrence: None)
  Receive Date: 20070321
  Receipt Date: 20070313
  Transmission Date: 20070707
  Serious: Yes (Other)
  Sender: FDA-Public Use
  Company Number: IT-ELI_LILLY_AND_COMPANY-IT200703003893

PATIENT
  Age: 71 Year
  Sex: Female

DRUGS (4)
  1. ZYPREXA [Suspect]
     Indication: SCHIZOAFFECTIVE DISORDER
     Dosage: 2.5 MG, UNK
     Dates: start: 20070101, end: 20070101
  2. ZYPREXA [Suspect]
     Dosage: 5 MG, UNK
     Dates: start: 20070201, end: 20070313
  3. ALPRAZOLAM [Concomitant]
     Dosage: 5 GTT, UNK
  4. CLOZAPINE [Concomitant]
     Indication: DELIRIUM
     Dosage: 25 MG, UNK
     Dates: start: 20060301, end: 20070118

REACTIONS (2)
  - LEUKOPENIA [None]
  - THROMBOCYTOPENIA [None]
